FAERS Safety Report 8027269-9 (Version None)
Quarter: 2012Q1

REPORT INFORMATION
  Report Type: 
  Country: None (occurrence: None)
  Receive Date: 20120105
  Receipt Date: 20120105
  Transmission Date: 20120608
  Serious: No
  Sender: FDA-Public Use
  Company Number: None

PATIENT
  Age: 48 Year
  Sex: Male

DRUGS (2)
  1. PEGINTERFERON ALFA-2A [Suspect]
     Indication: HEPATITIS C
     Dosage: PEGASYS 180MCG QWEEK SQ
     Route: 058
     Dates: start: 20111101
  2. RIBAVIRIN [Suspect]
     Dosage: RIBAPAK 500MG BID PO
     Route: 048
     Dates: start: 20111101

REACTIONS (3)
  - FATIGUE [None]
  - HAEMORRHOIDS [None]
  - DYSPNOEA [None]
